FAERS Safety Report 16288168 (Version 1)
Quarter: 2019Q2

REPORT INFORMATION
  Report Type: Report from Study
  Country: RO (occurrence: RO)
  Receive Date: 20190508
  Receipt Date: 20190508
  Transmission Date: 20190711
  Serious: Yes (Hospitalization)
  Sender: FDA-Public Use
  Company Number: RO-GILEAD-2019-0406069

PATIENT
  Age: 55 Year
  Sex: Female

DRUGS (6)
  1. NOLIPREL A [Concomitant]
  2. ESSENTIALE FORTE [Concomitant]
  3. LAGOSA [Concomitant]
     Active Substance: DIETARY SUPPLEMENT\HERBALS\MILK THISTLE
  4. LEDIPASVIR/SOFOSBUVIR [Suspect]
     Active Substance: LEDIPASVIR\SOFOSBUVIR
     Indication: HEPATITIS C
     Dosage: 1 DOSAGE FORM, QD
     Route: 048
     Dates: start: 20190208, end: 20190502
  5. LEDIPASVIR/SOFOSBUVIR [Suspect]
     Active Substance: LEDIPASVIR\SOFOSBUVIR
     Indication: HEPATIC CIRRHOSIS
  6. CONTROLOC CONTROL [Concomitant]

REACTIONS (3)
  - Gastric disorder [Recovered/Resolved]
  - Vomiting [Recovered/Resolved]
  - Intra-abdominal fluid collection [Recovered/Resolved]

NARRATIVE: CASE EVENT DATE: 201904
